FAERS Safety Report 9109421 (Version 1)
Quarter: 2013Q1

REPORT INFORMATION
  Report Type: Spontaneous
  Country: US (occurrence: US)
  Receive Date: 20130222
  Receipt Date: 20130222
  Transmission Date: 20140127
  Serious: Yes (Hospitalization)
  Sender: FDA-Public Use
  Company Number: US-BAYER-2013-021441

PATIENT
  Age: 31 Year
  Sex: 0
  Weight: 49.89 kg

DRUGS (2)
  1. BEYAZ [Suspect]
  2. NEURONTIN [Concomitant]
     Indication: MUSCULOSKELETAL PAIN

REACTIONS (2)
  - Deep vein thrombosis [Recovering/Resolving]
  - Pelvic venous thrombosis [Recovering/Resolving]
